FAERS Safety Report 7109910-8 (Version None)
Quarter: 2010Q4

REPORT INFORMATION
  Report Type: 
  Country: None (occurrence: None)
  Receive Date: 20101116
  Receipt Date: 20101116
  Transmission Date: 20110411
  Serious: Yes (Life-Threatening, Disabling)
  Sender: FDA-Public Use
  Company Number: None

PATIENT
  Sex: Female
  Weight: 68.0396 kg

DRUGS (1)
  1. INDERAL [Suspect]
     Indication: MIGRAINE
     Dates: start: 20100908, end: 20101010

REACTIONS (2)
  - BLOOD PRESSURE INCREASED [None]
  - REFUSAL OF TREATMENT BY PATIENT [None]
